FAERS Safety Report 9109236 (Version 3)
Quarter: 2013Q1

REPORT INFORMATION
  Report Type: Spontaneous
  Country: FR (occurrence: FR)
  Receive Date: 20130222
  Receipt Date: 20130312
  Transmission Date: 20140127
  Serious: Yes (Hospitalization, Other)
  Sender: FDA-Public Use
  Company Number: FR-ABBOTT-13P-056-1053037-00

PATIENT
  Age: 52 Year
  Sex: Female

DRUGS (2)
  1. UTROGESTAN [Suspect]
     Indication: HORMONE REPLACEMENT THERAPY
     Dosage: 1DF DAILY FROM DAY 14 TO DAY 25
     Dates: start: 201206, end: 201301
  2. ESTREVA [Suspect]
     Indication: HORMONE REPLACEMENT THERAPY
     Dosage: 2 DF DAILY FROM DAY 1 TO DAY 25
     Route: 048
     Dates: start: 201206, end: 201301

REACTIONS (1)
  - Myocardial infarction [Recovering/Resolving]
